FAERS Safety Report 8454272-7 (Version None)
Quarter: 2012Q2

REPORT INFORMATION
  Report Type: 
  Country: None (occurrence: None)
  Receive Date: 20120620
  Receipt Date: 20120612
  Transmission Date: 20120825
  Serious: Yes (Hospitalization)
  Sender: FDA-Public Use
  Company Number: US-RB-041457-12

PATIENT
  Age: 34 Year
  Sex: Male

DRUGS (3)
  1. SUBOXONE [Suspect]
     Indication: DRUG DEPENDENCE
     Dosage: 4-6 MG EVERY 2-3 DAYS
     Route: 060
     Dates: start: 20120401
  2. BUPRENORPHINE [Suspect]
     Indication: PAIN
     Dosage: 24 MG DAILY
     Route: 060
     Dates: end: 20120401
  3. SUBUTEX [Suspect]
     Indication: PAIN
     Dosage: 24 MG DAILY
     Route: 060
     Dates: start: 20070101

REACTIONS (6)
  - CONDITION AGGRAVATED [None]
  - UNDERDOSE [None]
  - LETHARGY [None]
  - WRONG TECHNIQUE IN DRUG USAGE PROCESS [None]
  - INTERVERTEBRAL DISC DEGENERATION [None]
  - OFF LABEL USE [None]
